FAERS Safety Report 8680192 (Version 4)
Quarter: 2013Q3

REPORT INFORMATION
  Report Type: Spontaneous
  Country: US (occurrence: US)
  Receive Date: 20120724
  Receipt Date: 20130927
  Transmission Date: 20140515
  Serious: Yes (Other)
  Sender: FDA-Public Use
  Company Number: US-UCBSA-062029

PATIENT
  Age: 72 Year
  Sex: Female
  Weight: 68 kg

DRUGS (15)
  1. CIMZIA [Suspect]
     Indication: RHEUMATOID ARTHRITIS
     Dosage: MAINTENANCE
     Dates: start: 20120208, end: 201204
  2. CIMZIA [Suspect]
     Indication: RHEUMATOID ARTHRITIS
     Dates: start: 201104
  3. METHOTREXATE [Concomitant]
     Dosage: 2.5 MG (9 TABS WEEKLY)
     Dates: end: 2012
  4. NAPROSYN [Concomitant]
     Dosage: 1 TAB
  5. FOLIC ACID [Concomitant]
  6. FLEXERIL [Concomitant]
     Dosage: 10 MG AT BEDTIME
  7. ATENOLOL [Concomitant]
     Indication: HYPERTENSION
  8. PREDNISONE [Concomitant]
     Indication: RHEUMATOID ARTHRITIS
     Dates: start: 2012
  9. EVISTA [Concomitant]
  10. IRON [Concomitant]
  11. MULTIVITAMIN [Concomitant]
  12. B COMPLEX [Concomitant]
  13. B12 [Concomitant]
  14. AMOXICILLIN [Concomitant]
     Dosage: 600 MG
  15. AMOXICILLIN [Concomitant]
     Dosage: 875 MG

REACTIONS (6)
  - Tongue neoplasm malignant stage unspecified [Unknown]
  - Tonsil cancer [Unknown]
  - Goitre [Unknown]
  - Mucosal inflammation [Recovering/Resolving]
  - Weight decreased [Unknown]
  - Dry mouth [Unknown]
